FAERS Safety Report 7250085-2 (Version None)
Quarter: 2011Q1

REPORT INFORMATION
  Report Type: 
  Country: None (occurrence: None)
  Receive Date: 20110128
  Receipt Date: 20101217
  Transmission Date: 20110831
  Serious: Yes (Other)
  Sender: FDA-Public Use
  Company Number: US-BAYER-201028702NA

PATIENT
  Sex: Female

DRUGS (3)
  1. PRILOSEC [Concomitant]
     Indication: GASTROOESOPHAGEAL REFLUX DISEASE
     Dosage: 20 MG, QD
  2. YAZ [Suspect]
     Indication: PRODUCT USED FOR UNKNOWN INDICATION
     Route: 048
     Dates: start: 20090201, end: 20100101
  3. EFFEXOR [Concomitant]
     Indication: ANXIETY
     Dosage: 100 MG, QD
     Route: 048

REACTIONS (9)
  - HYPOAESTHESIA [None]
  - MIGRAINE WITH AURA [None]
  - HEADACHE [None]
  - PHONOPHOBIA [None]
  - CEREBROVASCULAR ACCIDENT [None]
  - TRANSIENT ISCHAEMIC ATTACK [None]
  - PAIN [None]
  - TINNITUS [None]
  - PHOTOPHOBIA [None]
